FAERS Safety Report 24782414 (Version 2)
Quarter: 2025Q1

REPORT INFORMATION
  Report Type: Report from Study
  Country: US (occurrence: US)
  Receive Date: 20241227
  Receipt Date: 20250102
  Transmission Date: 20250409
  Serious: Yes (Hospitalization)
  Sender: BAYER HEALTHCARE PHARMACEUTICALS INC.
  Company Number: US-BAYER-2024A180799

PATIENT
  Sex: Female

DRUGS (2)
  1. ADEMPAS [Suspect]
     Active Substance: RIOCIGUAT
     Indication: Pulmonary arterial hypertension
     Dosage: 0.5 MG, TID
     Route: 048
     Dates: start: 20241206
  2. REMODULIN [Suspect]
     Active Substance: TREPROSTINIL
     Dates: start: 202412

REACTIONS (9)
  - Syncope [None]
  - Hypotension [None]
  - Hospitalisation [None]
  - Dizziness [Not Recovered/Not Resolved]
  - Dyspnoea exertional [None]
  - Pain in jaw [Not Recovered/Not Resolved]
  - Headache [Not Recovered/Not Resolved]
  - Injection site pain [None]
  - Injection site erythema [None]
